FAERS Safety Report 15765972 (Version 1)
Quarter: 2018Q4

REPORT INFORMATION
  Report Type: Spontaneous
  Country: US (occurrence: US)
  Receive Date: 20181207
  Receipt Date: 20181207
  Transmission Date: 20190205
  Serious: Yes (Death)
  Sender: FDA-Public Use
  Company Number: None

PATIENT
  Age: 79 Year
  Sex: Female
  Weight: 96.75 kg

DRUGS (14)
  1. GLIPIZIDE. [Suspect]
     Active Substance: GLIPIZIDE
     Indication: DIABETES MELLITUS
  2. GABAPENTIN. [Suspect]
     Active Substance: GABAPENTIN
  3. OMEPRAZOLE. [Suspect]
     Active Substance: OMEPRAZOLE
  4. ARICEPT [Concomitant]
     Active Substance: DONEPEZIL HYDROCHLORIDE
  5. SIMVASTATIN. [Suspect]
     Active Substance: SIMVASTATIN
  6. NORCO [Suspect]
     Active Substance: ACETAMINOPHEN\HYDROCODONE BITARTRATE
  7. SINGULAIR [Suspect]
     Active Substance: MONTELUKAST SODIUM
  8. LEVEMIR [Suspect]
     Active Substance: INSULIN DETEMIR
  9. NAMENDA [Suspect]
     Active Substance: MEMANTINE HYDROCHLORIDE
  10. LOSARTAN. [Suspect]
     Active Substance: LOSARTAN
  11. DIOVAN [Suspect]
     Active Substance: VALSARTAN
  12. VOLTAREN [Suspect]
     Active Substance: DICLOFENAC SODIUM
  13. NOVOLOG [Suspect]
     Active Substance: INSULIN ASPART
  14. ADVAIR HFA [Suspect]
     Active Substance: FLUTICASONE PROPIONATE\SALMETEROL XINAFOATE

REACTIONS (1)
  - Gangrene [None]

NARRATIVE: CASE EVENT DATE: 20181114
